FAERS Safety Report 11816632 (Version 1)
Quarter: 2015Q4

REPORT INFORMATION
  Report Type: Spontaneous
  Country: US (occurrence: US)
  Receive Date: 20151210
  Receipt Date: 20151210
  Transmission Date: 20160305
  Serious: No
  Sender: FDA-Public Use
  Company Number: US-JNJFOC-20151024161

PATIENT
  Age: 56 Year
  Sex: Female
  Weight: 81.19 kg

DRUGS (2)
  1. METFORMIN [Concomitant]
     Active Substance: METFORMIN HYDROCHLORIDE
     Route: 065
  2. INVOKANA [Suspect]
     Active Substance: CANAGLIFLOZIN
     Indication: TYPE 2 DIABETES MELLITUS
     Route: 065
     Dates: start: 20141001, end: 20151016

REACTIONS (7)
  - Hypersensitivity [Unknown]
  - Erythema [Unknown]
  - Swelling [Unknown]
  - Fungal infection [Unknown]
  - Pruritus [Unknown]
  - Feeling abnormal [Unknown]
  - Irritability [Unknown]
